FAERS Safety Report 8380125-9 (Version None)
Quarter: 2012Q2

REPORT INFORMATION
  Report Type: 
  Country: None (occurrence: None)
  Receive Date: 20120523
  Receipt Date: 20120514
  Transmission Date: 20120825
  Serious: Yes (Hospitalization)
  Sender: FDA-Public Use
  Company Number: US-JNJFOC-20120512798

PATIENT
  Sex: Female
  Weight: 67.13 kg

DRUGS (3)
  1. METHYLPREDNISOLONE [Concomitant]
     Indication: EAR DISORDER
  2. XARELTO [Suspect]
     Indication: ATRIAL FIBRILLATION
     Route: 048
     Dates: start: 20120501
  3. SOTALOL HCL [Suspect]
     Indication: ILL-DEFINED DISORDER
     Dates: start: 20120301

REACTIONS (2)
  - HEADACHE [None]
  - MALAISE [None]
